FAERS Safety Report 9283740 (Version 1)
Quarter: 2013Q2

REPORT INFORMATION
  Report Type: Spontaneous
  Country: US (occurrence: US)
  Receive Date: 20130510
  Receipt Date: 20130510
  Transmission Date: 20140414
  Serious: Yes (Other)
  Sender: FDA-Public Use
  Company Number: PHHY2013US044540

PATIENT
  Age: 50 Year
  Sex: Female

DRUGS (16)
  1. WARFARIN [Suspect]
     Indication: DEEP VEIN THROMBOSIS
     Dosage: 13.3 MG, UNK
     Dates: start: 2008
  2. WARFARIN [Interacting]
     Dosage: 19.3 MG, UNK
  3. RITONAVIR-BOOSTED DARUNAVIR [Interacting]
     Dosage: 1 DF, BID
     Dates: start: 201001
  4. ETRAVIRINE [Interacting]
     Dosage: 200 MG, BID
     Dates: start: 201001
  5. RALTEGRAVIR [Interacting]
     Dosage: 400 MG, BID
     Dates: start: 201001
  6. EMTRICITABINE [Concomitant]
     Dates: end: 201001
  7. DAPSONE [Concomitant]
     Dates: start: 200708, end: 201112
  8. FLUCONAZOLE [Concomitant]
     Dates: start: 200804, end: 201112
  9. VALGANCICLOVIR [Concomitant]
     Dates: start: 200708, end: 201112
  10. AZITHROMYCIN [Concomitant]
     Dosage: 1 DF, QW
     Dates: start: 200908, end: 201006
  11. LISINOPRIL [Concomitant]
     Dates: start: 200808
  12. BUSPIRONE [Concomitant]
     Dates: start: 200708, end: 201101
  13. HYDROCODONE/ACETAMINOPHEN [Concomitant]
     Dates: start: 200708
  14. PREDNISONE [Concomitant]
     Dates: start: 200708
  15. FLUDROCORTISONE [Concomitant]
     Dates: start: 200911, end: 201201
  16. POTASSIUM CHLORIDE [Concomitant]
     Dates: start: 200708, end: 201107

REACTIONS (1)
  - Drug interaction [Unknown]
